FAERS Safety Report 21842697 (Version 2)
Quarter: 2024Q4

REPORT INFORMATION
  Report Type: Spontaneous
  Country: US (occurrence: US)
  Receive Date: 20230110
  Receipt Date: 20241113
  Transmission Date: 20250115
  Serious: No
  Sender: SANOFI AVENTIS
  Company Number: US-SA-SAC20230109000835

PATIENT
  Age: 52 Year
  Sex: Female

DRUGS (6)
  1. DUPIXENT [Suspect]
     Active Substance: DUPILUMAB
     Indication: Dermatitis atopic
     Dosage: 300 MG, QOW
     Route: 058
     Dates: start: 20221221
  2. MONTELUKAST [Concomitant]
     Active Substance: MONTELUKAST
     Dosage: UNK
  3. OMEPRAZOLE [Concomitant]
     Active Substance: OMEPRAZOLE
  4. TRIAMCINOLONE [Concomitant]
     Active Substance: TRIAMCINOLONE
  5. ATORVASTATIN [Concomitant]
     Active Substance: ATORVASTATIN
  6. ZYRTEC [Concomitant]
     Active Substance: CETIRIZINE HYDROCHLORIDE

REACTIONS (4)
  - Stress [Recovered/Resolved]
  - Sleep disorder due to a general medical condition [Recovering/Resolving]
  - Dermatitis atopic [Recovered/Resolved]
  - Rash macular [Recovered/Resolved]

NARRATIVE: CASE EVENT DATE: 20230105
